FAERS Safety Report 8557535-X (Version None)
Quarter: 2012Q3

REPORT INFORMATION
  Report Type: 
  Country: None (occurrence: None)
  Receive Date: 20120801
  Receipt Date: 20120727
  Transmission Date: 20120928
  Serious: Yes (Hospitalization, Other)
  Sender: FDA-Public Use
  Company Number: US-PFIZER INC-2012123761

PATIENT
  Sex: Female

DRUGS (7)
  1. CHANTIX [Suspect]
     Indication: SMOKING CESSATION THERAPY
     Dosage: 0.5MG/1MG
     Dates: start: 20090101, end: 20090901
  2. SOMA [Concomitant]
     Indication: PAIN
     Dosage: UNK
     Dates: start: 20030101
  3. XANAX [Concomitant]
     Indication: ANXIETY
     Dosage: UNK
     Dates: start: 20000101
  4. HYDROCODONE [Concomitant]
     Indication: PAIN
     Dosage: UNK
     Dates: start: 20030101
  5. AMITRIPTYLINE [Concomitant]
     Indication: INSOMNIA
     Dosage: UNK
     Dates: start: 20070101
  6. AMBIEN [Concomitant]
     Indication: INSOMNIA
     Dosage: UNK
     Dates: start: 20070101
  7. PROZAC [Concomitant]
     Indication: DEPRESSION
     Dosage: UNK
     Dates: start: 20000101

REACTIONS (12)
  - DELUSION [None]
  - AGITATION [None]
  - SUICIDE ATTEMPT [None]
  - PARANOIA [None]
  - INTENTIONAL OVERDOSE [None]
  - ANXIETY [None]
  - SLEEP TERROR [None]
  - HALLUCINATION [None]
  - INSOMNIA [None]
  - DEPRESSION [None]
  - ABNORMAL BEHAVIOUR [None]
  - IRRITABILITY [None]
